FAERS Safety Report 15677552 (Version 1)
Quarter: 2018Q4

REPORT INFORMATION
  Report Type: Spontaneous
  Country: SK (occurrence: SK)
  Receive Date: 20181130
  Receipt Date: 20181130
  Transmission Date: 20190205
  Serious: Yes (Other)
  Sender: FDA-Public Use
  Company Number: SK-MYLANLABS-2018M1089596

PATIENT
  Age: 60 Year
  Sex: Male

DRUGS (1)
  1. IBUPROFEN. [Suspect]
     Active Substance: IBUPROFEN
     Indication: NEURALGIA
     Dosage: 4000 MILLIGRAM, QD (10 TABLETS/400 MG/ PER DAY (4000 MG IBUPROFEN PER DAY))
     Route: 048

REACTIONS (8)
  - Overdose [Unknown]
  - Ulcerative duodenitis [Unknown]
  - Melaena [Unknown]
  - Vomiting [Unknown]
  - Abdominal pain upper [Unknown]
  - Renal impairment [Unknown]
  - Normocytic anaemia [Unknown]
  - Gastrooesophageal reflux disease [Unknown]
